FAERS Safety Report 16845626 (Version 3)
Quarter: 2020Q4

REPORT INFORMATION
  Report Type: Spontaneous
  Country: US (occurrence: US)
  Receive Date: 20190924
  Receipt Date: 20201231
  Transmission Date: 20210113
  Serious: Yes (Other)
  Sender: FDA-Public Use
  Company Number: US-GILEAD-2019-0429615

PATIENT
  Age: 41 Year
  Sex: Male
  Weight: 68.03 kg

DRUGS (39)
  1. NORVIR [Concomitant]
     Active Substance: RITONAVIR
  2. EDURANT [Concomitant]
     Active Substance: RILPIVIRINE HYDROCHLORIDE
  3. MEPRON [Concomitant]
     Active Substance: ATOVAQUONE
  4. TRIMETHOPRIM SULFAMETHOXAZOLE [Concomitant]
     Active Substance: SULFAMETHOXAZOLE\TRIMETHOPRIM
  5. COMBIVIR [Concomitant]
     Active Substance: LAMIVUDINE\ZIDOVUDINE
  6. ACETAMINOPHEN. [Concomitant]
     Active Substance: ACETAMINOPHEN
  7. CARVEDILOL. [Concomitant]
     Active Substance: CARVEDILOL
  8. CALCIUM ACETATE. [Concomitant]
     Active Substance: CALCIUM ACETATE
  9. CRESTOR [Concomitant]
     Active Substance: ROSUVASTATIN CALCIUM
  10. TACROLIMUS. [Concomitant]
     Active Substance: TACROLIMUS
  11. HYDROCODONE/ACETAMINOPHEN [Concomitant]
     Active Substance: ACETAMINOPHEN\HYDROCODONE
  12. VIREAD [Suspect]
     Active Substance: TENOFOVIR DISOPROXIL FUMARATE
     Dosage: UNK
     Route: 048
     Dates: start: 2001, end: 201706
  13. DESCOVY [Concomitant]
     Active Substance: EMTRICITABINE\TENOFOVIR ALAFENAMIDE FUMARATE
  14. PROGRAF [Concomitant]
     Active Substance: TACROLIMUS
  15. PEPCID [Concomitant]
     Active Substance: FAMOTIDINE
  16. FLUOROMETHOLONE. [Concomitant]
     Active Substance: FLUOROMETHOLONE
  17. SUSTIVA [Concomitant]
     Active Substance: EFAVIRENZ
  18. ASPIRIN 81 [Concomitant]
     Active Substance: ASPIRIN
  19. BESIVANCE [Concomitant]
     Active Substance: BESIFLOXACIN
  20. CLINDAMYCIN. [Concomitant]
     Active Substance: CLINDAMYCIN
  21. HYDROCODONE [Concomitant]
     Active Substance: HYDROCODONE
  22. KETOCONAZOLE. [Concomitant]
     Active Substance: KETOCONAZOLE
  23. LEVOFLACIN [Concomitant]
  24. VELTASSA [Concomitant]
     Active Substance: PATIROMER
  25. AZITHROMYCIN ANHYDROUS. [Concomitant]
     Active Substance: AZITHROMYCIN ANHYDROUS
  26. ATOVAQUONE. [Concomitant]
     Active Substance: ATOVAQUONE
  27. AMLODIPINE [Concomitant]
     Active Substance: AMLODIPINE BESYLATE
  28. MYFORTIC [Concomitant]
     Active Substance: MYCOPHENOLATE SODIUM
  29. VIREAD [Suspect]
     Active Substance: TENOFOVIR DISOPROXIL FUMARATE
     Indication: HIV INFECTION
     Dosage: UNK
     Route: 048
     Dates: start: 2001, end: 2017
  30. ISENTRESS [Concomitant]
     Active Substance: RALTEGRAVIR POTASSIUM
  31. TIVICAY [Concomitant]
     Active Substance: DOLUTEGRAVIR SODIUM
  32. CEFALEXIN [Concomitant]
     Active Substance: CEPHALEXIN
  33. TRUVADA [Suspect]
     Active Substance: EMTRICITABINE\TENOFOVIR DISOPROXIL FUMARATE
     Indication: HIV INFECTION
     Dosage: UNK
     Route: 048
     Dates: start: 2001, end: 2017
  34. EMTRIVA [Concomitant]
     Active Substance: EMTRICITABINE
  35. JULUCA [Concomitant]
     Active Substance: DOLUTEGRAVIR SODIUM\RILPIVIRINE HYDROCHLORIDE
  36. AMOXICILLIN. [Concomitant]
     Active Substance: AMOXICILLIN
  37. NIFEDIPINE. [Concomitant]
     Active Substance: NIFEDIPINE
  38. FEXOFENADINE [Concomitant]
     Active Substance: FEXOFENADINE HYDROCHLORIDE
  39. NICIN [Concomitant]
     Active Substance: NATAMYCIN

REACTIONS (10)
  - Emotional distress [Not Recovered/Not Resolved]
  - Fatigue [Unknown]
  - Economic problem [Not Recovered/Not Resolved]
  - Anxiety [Not Recovered/Not Resolved]
  - Quality of life decreased [Not Recovered/Not Resolved]
  - Pain [Not Recovered/Not Resolved]
  - Renal transplant [Unknown]
  - Renal failure [Unknown]
  - Anhedonia [Not Recovered/Not Resolved]
  - Chronic kidney disease [Not Recovered/Not Resolved]

NARRATIVE: CASE EVENT DATE: 200404
